FAERS Safety Report 6393102-4 (Version None)
Quarter: 2009Q4

REPORT INFORMATION
  Report Type: 
  Country: None (occurrence: None)
  Receive Date: 20091008
  Receipt Date: 20090930
  Transmission Date: 20100525
  Serious: Yes (Hospitalization, Other)
  Sender: FDA-Public Use
  Company Number: US-BAYER-200915058BCC

PATIENT
  Age: 84 Year
  Sex: Female
  Weight: 65 kg

DRUGS (6)
  1. ASPIRIN [Suspect]
     Indication: ISCHAEMIC HEART DISEASE PROPHYLAXIS
     Dosage: TOTAL DAILY DOSE: 81 MG  UNIT DOSE: 81 MG
     Route: 048
     Dates: start: 20060101, end: 20080601
  2. SYNTHROID [Concomitant]
     Route: 065
  3. INDAPIMIDE [Concomitant]
     Route: 065
  4. LIPITOR [Concomitant]
     Route: 065
  5. LABETALOL HCL [Concomitant]
     Route: 065
  6. ALDACTONE [Concomitant]
     Route: 065

REACTIONS (3)
  - GASTRIC HAEMORRHAGE [None]
  - GASTRIC ULCER [None]
  - HAEMATOCHEZIA [None]
